FAERS Safety Report 4634069-6 (Version None)
Quarter: 2005Q2

REPORT INFORMATION
  Report Type: 
  Country: None (occurrence: None)
  Receive Date: 20050413
  Receipt Date: 20050405
  Transmission Date: 20051028
  Serious: Yes (Hospitalization)
  Sender: FDA-Public Use
  Company Number: IT-ROCHE-400868

PATIENT
  Age: 53 Year
  Sex: Male

DRUGS (3)
  1. ROCEPHIN [Suspect]
     Indication: BRONCHITIS
     Dosage: FORM: VIAL.
     Route: 030
     Dates: start: 20050326, end: 20050326
  2. VOLTAREN [Suspect]
     Indication: BRONCHITIS
     Route: 048
     Dates: start: 20050324, end: 20050325
  3. BISOLVON [Suspect]
     Indication: BRONCHITIS
     Route: 048
     Dates: start: 20050325, end: 20050325

REACTIONS (3)
  - ANAPHYLACTIC SHOCK [None]
  - BRONCHOSPASM [None]
  - GENERALISED ERYTHEMA [None]
